FAERS Safety Report 10855152 (Version 1)
Quarter: 2015Q1

REPORT INFORMATION
  Report Type: Spontaneous
  Country: US (occurrence: None)
  Receive Date: 20150218
  Receipt Date: 20150218
  Transmission Date: 20150721
  Serious: Yes (Disabling)
  Sender: FDA-Public Use
  Company Number: None

PATIENT
  Age: 31 Year
  Sex: Male
  Weight: 74.84 kg

DRUGS (1)
  1. LEVAQUIN [Suspect]
     Active Substance: LEVOFLOXACIN
     Indication: ATYPICAL PNEUMONIA
     Dosage: 2 PILLS OF 10, ONCE DAILY, TAKEN BY MOUTH
     Route: 048
     Dates: start: 20141201, end: 20141202

REACTIONS (6)
  - Apparent death [None]
  - Nervous system disorder [None]
  - Diplopia [None]
  - Tendonitis [None]
  - Pain [None]
  - Syncope [None]

NARRATIVE: CASE EVENT DATE: 20141201
